FAERS Safety Report 8180113-1 (Version None)
Quarter: 2012Q1

REPORT INFORMATION
  Report Type: 
  Country: None (occurrence: None)
  Receive Date: 20120229
  Receipt Date: 20120216
  Transmission Date: 20120608
  Serious: Yes (Other)
  Sender: FDA-Public Use
  Company Number: ABR_00382_2012

PATIENT
  Age: 27 Year
  Sex: Female
  Weight: 69 kg

DRUGS (8)
  1. FOLIC ACID [Concomitant]
  2. MONTELUKAST [Concomitant]
  3. VENTOLIN [Concomitant]
  4. CITALOPRAM HYDROBROMIDE [Concomitant]
  5. IRON [Concomitant]
  6. ERYTHROMYCIN [Suspect]
     Indication: SKIN INFECTION
     Dosage: UNK, ORAL
     Route: 048
     Dates: start: 20120123, end: 20120126
  7. TRAMADOL HCL [Concomitant]
  8. FLUTICASONE PROPIONATE/SALMETEROL [Concomitant]

REACTIONS (4)
  - ANGIOEDEMA [None]
  - PARAESTHESIA ORAL [None]
  - PARAESTHESIA [None]
  - SWELLING FACE [None]
